FAERS Safety Report 6919838-1 (Version None)
Quarter: 2010Q3

REPORT INFORMATION
  Report Type: 
  Country: None (occurrence: None)
  Receive Date: 20100811
  Receipt Date: 20100730
  Transmission Date: 20110219
  Serious: Yes (Other)
  Sender: FDA-Public Use
  Company Number: US-WYE-H16622010

PATIENT
  Sex: Female
  Weight: 105.33 kg

DRUGS (7)
  1. PRISTIQ [Suspect]
     Indication: DEPRESSION
     Route: 048
     Dates: start: 20100501
  2. AMBIEN [Concomitant]
  3. CYMBALTA [Suspect]
     Indication: DEPRESSION
     Dates: end: 20100101
  4. CYMBALTA [Suspect]
     Dates: start: 20100101
  5. CYMBALTA [Suspect]
     Dosage: HALF OF A 37.5 MG TABLET
     Dates: start: 20100101, end: 20100101
  6. CYMBALTA [Suspect]
     Dosage: 1/4 OF A 37.5 MG TABLET
     Dates: start: 20100101, end: 20100101
  7. SYNTHROID [Concomitant]
     Indication: THYROID DISORDER

REACTIONS (4)
  - ANEURYSM [None]
  - FATIGUE [None]
  - FIBROMYALGIA [None]
  - YELLOW SKIN [None]
